FAERS Safety Report 15794375 (Version 1)
Quarter: 2019Q1

REPORT INFORMATION
  Report Type: Spontaneous
  Country: US (occurrence: US)
  Receive Date: 20190106
  Receipt Date: 20190106
  Transmission Date: 20190417
  Serious: Yes (Other)
  Sender: FDA-Public Use
  Company Number: None

PATIENT
  Age: 74 Year
  Sex: Female
  Weight: 72 kg

DRUGS (5)
  1. VALSARTAN. [Suspect]
     Active Substance: VALSARTAN
     Dates: start: 20161001, end: 20181001
  2. LOSARTAN. [Suspect]
     Active Substance: LOSARTAN
     Indication: HYPERTENSION
     Dosage: ?          QUANTITY:1.5 TABLET(S);?
     Route: 048
     Dates: start: 20181001, end: 20181210
  3. MULTIE VITAMINES [Concomitant]
  4. LOSARTAN. [Concomitant]
     Active Substance: LOSARTAN
  5. METFORMIN [Concomitant]
     Active Substance: METFORMIN HYDROCHLORIDE

REACTIONS (10)
  - Dizziness [None]
  - Anxiety [None]
  - Syncope [None]
  - Hypersensitivity [None]
  - Disturbance in attention [None]
  - Product substitution issue [None]
  - Chest pain [None]
  - Depression [None]
  - Intrusive thoughts [None]
  - Insomnia [None]

NARRATIVE: CASE EVENT DATE: 20181001
